FAERS Safety Report 22323134 (Version 1)
Quarter: 2023Q2

REPORT INFORMATION
  Report Type: Spontaneous
  Country: RS (occurrence: RS)
  Receive Date: 20230516
  Receipt Date: 20230516
  Transmission Date: 20230721
  Serious: Yes (Death, Life-Threatening, Hospitalization)
  Sender: FDA-Public Use
  Company Number: RS-MACLEODS PHARMACEUTICALS US LTD-MAC2023041291

PATIENT

DRUGS (6)
  1. DULOXETINE [Interacting]
     Active Substance: DULOXETINE
     Indication: Depression
     Dosage: UNK
     Route: 065
  2. RASAGILINE [Interacting]
     Active Substance: RASAGILINE
     Indication: Parkinson^s disease
     Dosage: 1 MILLIGRAM, QD
     Route: 065
  3. LEVODOPA [Concomitant]
     Active Substance: LEVODOPA
     Indication: Parkinson^s disease
     Dosage: 700 MILLIGRAM, QD (IN FIVE DOSES)
     Route: 065
  4. BENSERAZIDE [Concomitant]
     Active Substance: BENSERAZIDE
     Indication: Parkinson^s disease
     Dosage: 175 MILLIGRAM, QD (IN FIVE DOSES)
     Route: 065
  5. ENTACAPONE [Concomitant]
     Active Substance: ENTACAPONE
     Indication: Parkinson^s disease
     Dosage: 400 MILLIGRAM, QD (IN TWO DOSES)
     Route: 065
  6. ROPINIROLE [Concomitant]
     Active Substance: ROPINIROLE
     Indication: Parkinson^s disease
     Dosage: 12 MILLIGRAM, QD (IN TWO DOSES)
     Route: 065

REACTIONS (10)
  - Death [Fatal]
  - Serotonin syndrome [Unknown]
  - Neuroleptic malignant syndrome [Unknown]
  - Renal failure [Unknown]
  - Brain oedema [Unknown]
  - Metabolic acidosis [Unknown]
  - Oculocephalogyric reflex absent [Unknown]
  - Respiratory acidosis [Unknown]
  - Acute kidney injury [Unknown]
  - Drug interaction [Unknown]
